FAERS Safety Report 4441001-7 (Version None)
Quarter: 2004Q3

REPORT INFORMATION
  Report Type: 
  Country: None (occurrence: None)
  Receive Date: 20040728
  Receipt Date: 20040415
  Transmission Date: 20050211
  Serious: No
  Sender: FDA-Public Use
  Company Number: USA040465047

PATIENT
  Age: 43 Year
  Sex: Female

DRUGS (4)
  1. STRATTERA [Suspect]
     Dosage: 60 MG DAY
     Dates: start: 20040301
  2. DIAZEPAM [Concomitant]
  3. PREMARIN [Concomitant]
  4. ... [Concomitant]

REACTIONS (2)
  - INSOMNIA [None]
  - SOMNOLENCE [None]
